FAERS Safety Report 11246062 (Version 1)
Quarter: 2015Q3

REPORT INFORMATION
  Report Type: Spontaneous
  Country: US (occurrence: US)
  Receive Date: 20150708
  Receipt Date: 20150708
  Transmission Date: 20151125
  Serious: Yes (Hospitalization)
  Sender: FDA-Public Use
  Company Number: US-VALEANT PHARMACEUTICALS NORTH AMERICA-2015PROUSA04319

PATIENT
  Age: 78 Year
  Sex: Male
  Weight: 97.51 kg

DRUGS (7)
  1. FIRMAGON [Concomitant]
     Active Substance: DEGARELIX ACETATE
     Indication: PROSTATE CANCER
     Dosage: UNK
     Dates: start: 201312, end: 20150126
  2. ALENDRONATE SODIUM W/CALCIUM/COLECALCIFEROL [Concomitant]
     Indication: OSTEOPOROSIS
  3. PROVENGE [Suspect]
     Active Substance: SIPULEUCEL-T
     Indication: PROSTATE CANCER METASTATIC
     Dosage: 250 ML, SINGLE
     Route: 042
     Dates: start: 20150205, end: 20150205
  4. PROVENGE [Suspect]
     Active Substance: SIPULEUCEL-T
     Dosage: 250 ML, SINGLE
     Route: 042
     Dates: start: 20150316, end: 20150316
  5. MEGACE [Concomitant]
     Active Substance: MEGESTROL ACETATE
     Indication: HOT FLUSH
  6. PROVENGE [Suspect]
     Active Substance: SIPULEUCEL-T
     Dosage: 250 ML, SINGLE
     Route: 042
     Dates: start: 20150323, end: 20150323
  7. CARDURA [Concomitant]
     Active Substance: DOXAZOSIN MESYLATE
     Indication: BLADDER OUTLET OBSTRUCTION

REACTIONS (3)
  - Aggression [Recovering/Resolving]
  - Device related infection [Recovered/Resolved]
  - Confusional state [Recovering/Resolving]

NARRATIVE: CASE EVENT DATE: 20150224
